FAERS Safety Report 9496443 (Version 3)
Quarter: 2013Q4

REPORT INFORMATION
  Report Type: Report from Study
  Country: DE (occurrence: DE)
  Receive Date: 20130904
  Receipt Date: 20131105
  Transmission Date: 20140711
  Serious: Yes (Other)
  Sender: FDA-Public Use
  Company Number: PHHY2013DE091621

PATIENT
  Age: 65 Year
  Sex: Male

DRUGS (5)
  1. CGP 57148B [Suspect]
     Indication: PLATELET-DERIVED GROWTH FACTOR RECEPTOR OVEREXPRESSION
     Dosage: 400 MG, DAILY
     Route: 048
     Dates: start: 200403, end: 201004
  2. CGP 57148B [Suspect]
     Dosage: 200 MG, DAILY
     Route: 048
     Dates: start: 201004, end: 201006
  3. CGP 57148B [Suspect]
     Dosage: 400 MG, DAILY
     Route: 048
     Dates: start: 201006, end: 20130110
  4. CGP 57148B [Suspect]
     Dosage: 50 MG, DAILY
     Route: 048
     Dates: start: 201301
  5. CGP 57148B [Suspect]
     Dosage: 100 MG, 3 TIMES PER WEEK
     Route: 048
     Dates: start: 20130110

REACTIONS (5)
  - Thrombocytopenia [Not Recovered/Not Resolved]
  - Bladder obstruction [Recovered/Resolved]
  - Dehydration [Recovered/Resolved]
  - Renal failure acute [Recovered/Resolved]
  - Acute prerenal failure [Recovered/Resolved]
